FAERS Safety Report 19990694 (Version 2)
Quarter: 2021Q4

REPORT INFORMATION
  Report Type: Spontaneous
  Country: US (occurrence: US)
  Receive Date: 20211025
  Receipt Date: 20211117
  Transmission Date: 20220304
  Serious: Yes (Hospitalization, Other)
  Sender: FDA-Public Use
  Company Number: US-SANOFI-00818938

PATIENT
  Sex: Female

DRUGS (1)
  1. AMBIEN [Suspect]
     Active Substance: ZOLPIDEM TARTRATE
     Dosage: UNK

REACTIONS (12)
  - Mental impairment [Unknown]
  - Knee arthroplasty [Unknown]
  - Dyspnoea [Not Recovered/Not Resolved]
  - Incontinence [Not Recovered/Not Resolved]
  - Illness [Unknown]
  - Wound dehiscence [Unknown]
  - Lung disorder [Recovering/Resolving]
  - Dizziness [Unknown]
  - Insomnia [Unknown]
  - Disturbance in attention [Unknown]
  - Somnambulism [Unknown]
  - Fall [Unknown]
